FAERS Safety Report 16779819 (Version 1)
Quarter: 2019Q3

REPORT INFORMATION
  Report Type: Report from Study
  Country: IT (occurrence: IT)
  Receive Date: 20190906
  Receipt Date: 20190906
  Transmission Date: 20191005
  Serious: Yes (Hospitalization)
  Sender: FDA-Public Use
  Company Number: IT-EISAI MEDICAL RESEARCH-EC-2019-061718

PATIENT
  Age: 77 Year
  Sex: Male
  Weight: 92 kg

DRUGS (10)
  1. FERROCIN PLUS [Concomitant]
  2. INDOBUFEN [Concomitant]
     Active Substance: INDOBUFEN
  3. XANAX [Concomitant]
     Active Substance: ALPRAZOLAM
  4. LENVATINIB [Suspect]
     Active Substance: LENVATINIB
     Indication: RENAL CELL CARCINOMA
     Route: 048
     Dates: start: 20190528
  5. KAYEXALATE [Concomitant]
     Active Substance: SODIUM POLYSTYRENE SULFONATE
  6. EVEROLIMUS. [Suspect]
     Active Substance: EVEROLIMUS
     Indication: RENAL CELL CARCINOMA
     Route: 048
     Dates: start: 20190528
  7. ALLOPURINOL. [Concomitant]
     Active Substance: ALLOPURINOL
  8. EUTHYROX [Concomitant]
     Active Substance: LEVOTHYROXINE SODIUM
  9. METPROLOL [Concomitant]
     Active Substance: METOPROLOL
  10. CIPRALEX [Concomitant]
     Active Substance: ESCITALOPRAM OXALATE

REACTIONS (1)
  - Proteinuria [Unknown]

NARRATIVE: CASE EVENT DATE: 20190821
